FAERS Safety Report 4852994-8 (Version None)
Quarter: 2005Q4

REPORT INFORMATION
  Report Type: 
  Country: None (occurrence: None)
  Receive Date: 20051214
  Receipt Date: 20051129
  Transmission Date: 20060501
  Serious: Yes (Other)
  Sender: FDA-Public Use
  Company Number: GBWYE185829NOV05

PATIENT
  Sex: Male
  Weight: 36 kg

DRUGS (4)
  1. ENBREL [Suspect]
     Indication: POLYARTHRITIS
     Route: 058
     Dates: start: 20050718
  2. IBUPROFEN [Concomitant]
     Route: 048
     Dates: start: 20041101
  3. PREDNISOLONE [Concomitant]
     Dosage: 3 MG
     Route: 048
     Dates: start: 20050901
  4. METHOTREXATE [Concomitant]
     Dates: start: 20041101

REACTIONS (1)
  - INJECTION SITE RASH [None]
